FAERS Safety Report 8886690 (Version 8)
Quarter: 2013Q3

REPORT INFORMATION
  Report Type: Spontaneous
  Country: US (occurrence: US)
  Receive Date: 20121105
  Receipt Date: 20130910
  Transmission Date: 20140515
  Serious: Yes (Hospitalization, Other)
  Sender: FDA-Public Use
  Company Number: US-GENZYME-POMP-1002516

PATIENT
  Age: 16 Year
  Sex: Female
  Weight: 51.3 kg

DRUGS (20)
  1. LUMIZYME [Suspect]
     Indication: GLYCOGEN STORAGE DISEASE TYPE II
     Dosage: 17.5 MG/KG, Q2W
     Route: 042
     Dates: start: 20101231
  2. LUMIZYME [Suspect]
     Dosage: 400 MG, Q2W
     Route: 042
  3. MYOZYME [Suspect]
     Indication: GLYCOGEN STORAGE DISEASE TYPE II
     Dosage: UNK
     Route: 042
     Dates: start: 20090512, end: 20101231
  4. IBUPROFEN [Concomitant]
     Indication: PREMEDICATION
     Dosage: 400 MG, UNK
     Route: 048
     Dates: start: 20121012
  5. AMITRIPTYLINE [Concomitant]
     Indication: MIGRAINE
     Dosage: 50 MG, QD AT BEDTIME
     Route: 048
  6. AMITRIPTYLINE [Concomitant]
     Indication: ANXIETY
  7. SERTRALINE [Concomitant]
     Indication: MIGRAINE
     Dosage: 50 MG, QD, A.M.
     Route: 048
  8. SERTRALINE [Concomitant]
     Indication: ANXIETY
  9. EPHEDRINE [Concomitant]
     Indication: MIGRAINE
     Dosage: 25 MG, BID
     Route: 048
  10. EPHEDRINE [Concomitant]
     Indication: ANXIETY
  11. CELECOXIB [Concomitant]
     Indication: PRODUCT USED FOR UNKNOWN INDICATION
     Dosage: 100 MG, BID
     Route: 048
  12. HYDROCODONE [Concomitant]
     Indication: PAIN
     Dosage: 1 UNK, Q4HR, PRN
     Route: 048
  13. METHYLPREDNISOLONE [Concomitant]
     Indication: PREMEDICATION
     Dosage: UNK UNK, UNK
     Route: 065
  14. GABAPENTINE [Concomitant]
     Indication: PAIN
     Dosage: 100 MG, BID
     Route: 048
     Dates: start: 20121011
  15. GABAPENTINE [Concomitant]
     Indication: MIGRAINE
  16. GABAPENTINE [Concomitant]
     Indication: ANXIETY
  17. LIDOCAINE [Concomitant]
     Indication: PRODUCT USED FOR UNKNOWN INDICATION
     Dosage: UNK
     Route: 061
  18. ULTRAM [Concomitant]
     Indication: PAIN
     Dosage: UNK UNK, UNK
     Route: 065
  19. CORTICOSTEROIDS [Concomitant]
     Indication: PREMEDICATION
     Dosage: UNK UNK, UNK
     Route: 065
     Dates: start: 20121012
  20. ACETAMINOPHEN [Concomitant]
     Indication: PRODUCT USED FOR UNKNOWN INDICATION
     Dosage: 325 MG, Q4HR
     Route: 065

REACTIONS (6)
  - Pain [Recovered/Resolved]
  - Muscular weakness [Recovered/Resolved]
  - Muscle spasms [Recovered/Resolved]
  - Gait disturbance [Unknown]
  - Myositis [Not Recovered/Not Resolved]
  - Fatigue [Unknown]
